FAERS Safety Report 18516349 (Version 3)
Quarter: 2020Q4

REPORT INFORMATION
  Report Type: Spontaneous
  Country: PL (occurrence: PL)
  Receive Date: 20201118
  Receipt Date: 20201203
  Transmission Date: 20210114
  Serious: Yes (Death, Life-Threatening, Other)
  Sender: FDA-Public Use
  Company Number: PL-MYLANLABS-2020M1094732

PATIENT
  Age: 33 Year
  Sex: Female

DRUGS (7)
  1. EVEROLIMUS. [Suspect]
     Active Substance: EVEROLIMUS
     Indication: LUNG NEOPLASM MALIGNANT
  2. EVEROLIMUS. [Suspect]
     Active Substance: EVEROLIMUS
     Indication: CARCINOID TUMOUR PULMONARY
  3. CAPECITABINE. [Suspect]
     Active Substance: CAPECITABINE
     Indication: METASTATIC NEOPLASM
     Dosage: 750 MG/M2, 2X PER DAY
     Route: 065
  4. EVEROLIMUS. [Suspect]
     Active Substance: EVEROLIMUS
     Indication: METASTATIC NEOPLASM
     Dosage: UNK UNK, CYCLE (DISCONTINUED AFTER THE FOURTH CYCLE)
     Route: 065
     Dates: start: 201811
  5. CAPECITABINE. [Suspect]
     Active Substance: CAPECITABINE
     Indication: PALLIATIVE CARE
  6. TEMOZOLOMIDE. [Suspect]
     Active Substance: TEMOZOLOMIDE
     Indication: METASTATIC NEOPLASM
     Dosage: 200 MG/M2, PER DAY
  7. TEMOZOLOMIDE. [Suspect]
     Active Substance: TEMOZOLOMIDE
     Indication: PALLIATIVE CARE

REACTIONS (11)
  - Neutropenia [Unknown]
  - Therapy partial responder [Unknown]
  - Respiratory tract infection [Fatal]
  - Off label use [Unknown]
  - Respiratory tract infection [Unknown]
  - Metastases to breast [Fatal]
  - Thrombocytopenia [Unknown]
  - Anaemia [Unknown]
  - Product use in unapproved indication [Unknown]
  - Metastases to liver [Fatal]
  - Metastases to bone [Fatal]

NARRATIVE: CASE EVENT DATE: 201805
